FAERS Safety Report 23177500 (Version 2)
Quarter: 2023Q4

REPORT INFORMATION
  Report Type: Spontaneous
  Country: US (occurrence: US)
  Receive Date: 20231113
  Receipt Date: 20231205
  Transmission Date: 20240110
  Serious: No
  Sender: FDA-Public Use
  Company Number: US-BAYER-2023A159162

PATIENT
  Age: 80 Year
  Sex: Female

DRUGS (9)
  1. MIRALAX [Suspect]
     Active Substance: POLYETHYLENE GLYCOL 3350
     Indication: Gastrointestinal disorder
     Dosage: 1 TEASPOON
     Route: 048
  2. MIRALAX [Suspect]
     Active Substance: POLYETHYLENE GLYCOL 3350
     Indication: Constipation
  3. MINERALS\VITAMINS [Concomitant]
     Active Substance: MINERALS\VITAMINS
     Dosage: UNK
  4. SYNTHROID [Concomitant]
     Active Substance: LEVOTHYROXINE SODIUM
     Dosage: 25 MCG AT BEDTIME
  5. KIRKLAND SIGNATURE ALLERCLEAR [Concomitant]
     Active Substance: LORATADINE
     Dosage: 1 X 1 A DAY
  6. SERTRALINE [Concomitant]
     Active Substance: SERTRALINE HYDROCHLORIDE
  7. SINEMET [Concomitant]
     Active Substance: CARBIDOPA\LEVODOPA
  8. LYRICA [Concomitant]
     Active Substance: PREGABALIN
  9. MYRBETRIQ [Concomitant]
     Active Substance: MIRABEGRON

REACTIONS (1)
  - Incorrect dose administered [Unknown]
